FAERS Safety Report 15340011 (Version 1)
Quarter: 2018Q3

REPORT INFORMATION
  Report Type: Spontaneous
  Country: GB (occurrence: GB)
  Receive Date: 20180831
  Receipt Date: 20180831
  Transmission Date: 20181010
  Serious: Yes (Other)
  Sender: FDA-Public Use
  Company Number: GB-ALLERGAN-1842081US

PATIENT
  Age: 62 Year
  Sex: Male
  Weight: 63.49 kg

DRUGS (2)
  1. RISEDRONATE SODIUM ? BP [Suspect]
     Active Substance: RISEDRONATE SODIUM
     Indication: OSTEOPOROSIS
     Dosage: UNK
     Route: 048
     Dates: start: 20170511, end: 20180715
  2. THYROXINE [Concomitant]
     Active Substance: LEVOTHYROXINE
     Indication: PRODUCT USED FOR UNKNOWN INDICATION
     Route: 065

REACTIONS (2)
  - Glossodynia [Recovered/Resolved]
  - Tongue ulceration [Recovered/Resolved]

NARRATIVE: CASE EVENT DATE: 20180701
